FAERS Safety Report 21304228 (Version 1)
Quarter: 2022Q3

REPORT INFORMATION
  Report Type: Spontaneous
  Country: US (occurrence: None)
  Receive Date: 20220907
  Receipt Date: 20220907
  Transmission Date: 20221027
  Serious: No
  Sender: FDA-Public Use
  Company Number: US-ARIS GLOBAL-202107-1176

PATIENT
  Age: 79 Year
  Sex: Female

DRUGS (17)
  1. OXERVATE [Suspect]
     Active Substance: CENEGERMIN-BKBJ
     Indication: Neurotrophic keratopathy
     Route: 047
     Dates: start: 20210607
  2. ASPIRIN [Concomitant]
     Active Substance: ASPIRIN
  3. NOVOLOG [Concomitant]
     Active Substance: INSULIN ASPART
  4. VITAMIN D3 [Concomitant]
     Active Substance: CHOLECALCIFEROL
  5. CYANOCOBALAMIN [Concomitant]
     Active Substance: CYANOCOBALAMIN
  6. DULOXETINE [Concomitant]
     Active Substance: DULOXETINE
  7. TRICOR [Concomitant]
     Active Substance: FENOFIBRATE
  8. LASIX [Concomitant]
     Active Substance: FUROSEMIDE
  9. ISOSORBIDE DINITRATE [Concomitant]
     Active Substance: ISOSORBIDE DINITRATE
  10. LOSARTAN POTASSIUM [Concomitant]
     Active Substance: LOSARTAN POTASSIUM
  11. PANTOPRAZOLE SODIUM [Concomitant]
     Active Substance: PANTOPRAZOLE SODIUM
  12. PRAVASTATIN SODIUM [Concomitant]
     Active Substance: PRAVASTATIN SODIUM
  13. TECFIDERA [Concomitant]
     Active Substance: DIMETHYL FUMARATE
  14. TRAZODONE HCL [Concomitant]
     Active Substance: TRAZODONE HYDROCHLORIDE
  15. MOXIFLOXACIN [Concomitant]
     Active Substance: MOXIFLOXACIN
  16. POLYMYXIN B SUL-TRIMETHOPRIM [Concomitant]
  17. DUREZOL [Concomitant]
     Active Substance: DIFLUPREDNATE

REACTIONS (2)
  - Photophobia [Unknown]
  - Asthenopia [Unknown]
